FAERS Safety Report 4314932-6 (Version None)
Quarter: 2004Q1

REPORT INFORMATION
  Report Type: 
  Country: None (occurrence: None)
  Receive Date: 20040310
  Receipt Date: 20040107
  Transmission Date: 20041129
  Serious: Yes (Other)
  Sender: FDA-Public Use
  Company Number: WAES 0401USA00642

PATIENT
  Age: 65 Year
  Sex: Male
  Weight: 66 kg

DRUGS (3)
  1. EPALRESTAT [Concomitant]
     Indication: DIABETIC NEUROPATHY
     Dates: start: 20030121, end: 20031230
  2. COZAAR [Suspect]
     Indication: HYPERTENSION
     Route: 048
     Dates: start: 20031104, end: 20031230
  3. NATEGLINIDE [Concomitant]
     Indication: DIABETES MELLITUS
     Dates: start: 20030121, end: 20031230

REACTIONS (2)
  - ANOREXIA [None]
  - STEVENS-JOHNSON SYNDROME [None]
